FAERS Safety Report 15200764 (Version 1)
Quarter: 2018Q3

REPORT INFORMATION
  Report Type: Spontaneous
  Country: US (occurrence: US)
  Receive Date: 20180726
  Receipt Date: 20180726
  Transmission Date: 20181010
  Serious: Yes (Hospitalization, Other)
  Sender: FDA-Public Use
  Company Number: US-ZYDUS-020909

PATIENT
  Age: 35 Year
  Sex: Female

DRUGS (1)
  1. PYRIDOSTIGMINE [Suspect]
     Active Substance: PYRIDOSTIGMINE
     Indication: PRODUCT USED FOR UNKNOWN INDICATION
     Route: 065

REACTIONS (13)
  - Miosis [Unknown]
  - Hyperhidrosis [Unknown]
  - Depressed level of consciousness [Unknown]
  - Intentional overdose [Unknown]
  - Toxicity to various agents [Unknown]
  - Mental disorder [Unknown]
  - Respiratory depression [Unknown]
  - Asthenia [Unknown]
  - Suicide attempt [Unknown]
  - Bradycardia [Unknown]
  - Neuropathy peripheral [Unknown]
  - Toxic encephalopathy [Unknown]
  - Drooling [Unknown]
